FAERS Safety Report 6795479-4 (Version None)
Quarter: 2010Q2

REPORT INFORMATION
  Report Type: 
  Country: None (occurrence: None)
  Receive Date: 20100625
  Receipt Date: 20100613
  Transmission Date: 20101027
  Serious: Yes (Other)
  Sender: FDA-Public Use
  Company Number: PHHY2010IL38160

PATIENT
  Age: 6 Year
  Sex: Female

DRUGS (2)
  1. RITALIN LA [Suspect]
     Indication: ATTENTION DEFICIT/HYPERACTIVITY DISORDER
     Dosage: 1/4 AMOUNT OF CAPSULE
  2. RITALIN LA [Suspect]
     Dosage: 1/2 AMOUNT OF CAPSULE

REACTIONS (2)
  - SPEECH DISORDER [None]
  - WRONG TECHNIQUE IN DRUG USAGE PROCESS [None]
